FAERS Safety Report 13372849 (Version 1)
Quarter: 2017Q1

REPORT INFORMATION
  Report Type: Spontaneous
  Country: US (occurrence: US)
  Receive Date: 20170325
  Receipt Date: 20170325
  Transmission Date: 20170429
  Serious: Yes (Hospitalization, Disabling)
  Sender: FDA-Public Use
  Company Number: None

PATIENT
  Age: 32 Year
  Sex: Female
  Weight: 54.9 kg

DRUGS (7)
  1. ARTEQUIN 600/750 [Suspect]
     Active Substance: ARTESUNATE\MEFLOQUINE
     Indication: MALARIA
     Route: 048
     Dates: start: 20160502, end: 20160504
  2. BUPROPION. [Concomitant]
     Active Substance: BUPROPION
  3. COCONUT OIL [Concomitant]
     Active Substance: COCONUT OIL
  4. FISH OIL [Concomitant]
     Active Substance: FISH OIL
  5. MAGNESIUM [Concomitant]
     Active Substance: MAGNESIUM
  6. RITALIN [Concomitant]
     Active Substance: METHYLPHENIDATE HYDROCHLORIDE
  7. VITAMIN D [Concomitant]
     Active Substance: CHOLECALCIFEROL

REACTIONS (11)
  - Feeling abnormal [None]
  - Pain [None]
  - Heart rate decreased [None]
  - Burning sensation [None]
  - Speech disorder [None]
  - Conversion disorder [None]
  - Oral discomfort [None]
  - Head discomfort [None]
  - Dysphagia [None]
  - Muscle contracture [None]
  - Pyrexia [None]

NARRATIVE: CASE EVENT DATE: 20160502
